FAERS Safety Report 6010993-7 (Version None)
Quarter: 2008Q4

REPORT INFORMATION
  Report Type: 
  Country: None (occurrence: None)
  Receive Date: 20081218
  Receipt Date: 20081216
  Transmission Date: 20090506
  Serious: Yes (Death, Other)
  Sender: FDA-Public Use
  Company Number: B0550780A

PATIENT
  Age: 81 Year
  Sex: Female

DRUGS (4)
  1. OMACOR [Suspect]
     Route: 048
     Dates: start: 20080902, end: 20080903
  2. BISOPROLOL FUMARATE [Concomitant]
  3. PRISDAL [Concomitant]
  4. TRANKIMAZIN [Concomitant]

REACTIONS (6)
  - ASTHENIA [None]
  - DIZZINESS [None]
  - FALL [None]
  - GAIT DISTURBANCE [None]
  - RADIUS FRACTURE [None]
  - SUDDEN DEATH [None]
